FAERS Safety Report 4413842-3 (Version None)
Quarter: 2004Q3

REPORT INFORMATION
  Report Type: 
  Country: None (occurrence: None)
  Receive Date: 20040728
  Receipt Date: 20040713
  Transmission Date: 20050211
  Serious: No
  Sender: FDA-Public Use
  Company Number: 237709

PATIENT
  Age: 61 Year
  Sex: Female

DRUGS (2)
  1. PRANDIN [Suspect]
     Indication: DIABETES MELLITUS NON-INSULIN-DEPENDENT
     Dosage: 2 MG, TID, PER ORAL
     Route: 048
     Dates: start: 20030701
  2. GLIPIZIDE [Concomitant]

REACTIONS (4)
  - SENSITIVITY OF TEETH [None]
  - TOOTH DISCOLOURATION [None]
  - TOOTH INFECTION [None]
  - TOOTHACHE [None]
